FAERS Safety Report 8323124-5 (Version None)
Quarter: 2012Q2

REPORT INFORMATION
  Report Type: 
  Country: None (occurrence: None)
  Receive Date: 20120430
  Receipt Date: 20120420
  Transmission Date: 20120825
  Serious: Yes (Hospitalization)
  Sender: FDA-Public Use
  Company Number: PHHY2012JP031388

PATIENT
  Age: 14 Year
  Sex: Male

DRUGS (3)
  1. COLCHICINE [Concomitant]
     Indication: BEHCET'S SYNDROME
     Dosage: UNK UKN, UNK
     Route: 048
  2. INFLIXIMAB [Concomitant]
     Dosage: UNK UKN, UNK
     Dates: start: 20090901
  3. NEORAL [Suspect]
     Dosage: UNK UKN, UNK
     Route: 048

REACTIONS (2)
  - CATARACT [None]
  - VISUAL IMPAIRMENT [None]
